FAERS Safety Report 11163751 (Version 2)
Quarter: 2015Q2

REPORT INFORMATION
  Report Type: Spontaneous
  Country: US (occurrence: US)
  Receive Date: 20150604
  Receipt Date: 20150616
  Transmission Date: 20150821
  Serious: Yes (Hospitalization, Other)
  Sender: FDA-Public Use
  Company Number: US-SA-2015SA074674

PATIENT
  Age: 67 Year
  Sex: Female
  Weight: 73.9 kg

DRUGS (6)
  1. LASIX [Suspect]
     Active Substance: FUROSEMIDE
     Indication: PRODUCT USED FOR UNKNOWN INDICATION
     Route: 065
  2. XARELTO [Concomitant]
     Active Substance: RIVAROXABAN
  3. ADCIRCA [Concomitant]
     Active Substance: TADALAFIL
  4. REMODULIN [Suspect]
     Active Substance: TREPROSTINIL
     Indication: PULMONARY HYPERTENSION
     Dosage: DOSE:0.038 UG/KG
     Route: 058
     Dates: start: 20150309
  5. LETAIRIS [Concomitant]
     Active Substance: AMBRISENTAN
  6. REMODULIN [Suspect]
     Active Substance: TREPROSTINIL
     Indication: PULMONARY HYPERTENSION
     Dosage: DOSE:0.038 UG/KG
     Route: 058

REACTIONS (17)
  - Oedema peripheral [Unknown]
  - Dyspnoea [Unknown]
  - Anxiety [Unknown]
  - Fluid retention [Unknown]
  - Clostridium difficile infection [Unknown]
  - Depressed mood [Unknown]
  - Pain in extremity [Unknown]
  - Diarrhoea [Unknown]
  - Chills [Unknown]
  - Accidental overdose [Unknown]
  - Mobility decreased [Unknown]
  - Adverse event [Unknown]
  - Confusional state [Unknown]
  - Pulmonary oedema [Unknown]
  - Renal impairment [Unknown]
  - Pyrexia [Unknown]
  - Feeling hot [Unknown]

NARRATIVE: CASE EVENT DATE: 201504
